FAERS Safety Report 13356023 (Version 3)
Quarter: 2017Q2

REPORT INFORMATION
  Report Type: Spontaneous
  Country: IT (occurrence: IT)
  Receive Date: 20170321
  Receipt Date: 20170404
  Transmission Date: 20170830
  Serious: Yes (Hospitalization)
  Sender: FDA-Public Use
  Company Number: IT-TEVA-747482ACC

PATIENT
  Age: 50 Year
  Sex: Female

DRUGS (9)
  1. COPAXONE [Suspect]
     Active Substance: GLATIRAMER ACETATE
     Route: 058
     Dates: start: 20160511, end: 20170225
  2. COPAXONE [Suspect]
     Active Substance: GLATIRAMER ACETATE
     Indication: MULTIPLE SCLEROSIS
  3. SATIVEX - SPRAY PER MUCOSA ORALE [Concomitant]
     Indication: MULTIPLE SCLEROSIS
     Route: 048
  4. NORVASC - 10 MG COMPRESSE [Concomitant]
     Indication: HYPERTENSION
     Dosage: 5 MILLIGRAM DAILY;
  5. ENAPRIL [Concomitant]
     Active Substance: ENALAPRIL
     Indication: HYPERTENSION
  6. SATIVEX - SPRAY PER MUCOSA ORALE [Concomitant]
     Indication: MUSCLE SPASTICITY
     Dosage: 1 DOSAGE FORMS DAILY;
  7. ZUGLIMET - 500 MG COMPRESSE RIVESTITE CON FILM [Concomitant]
     Indication: DIABETES MELLITUS
     Route: 048
  8. NORVASC - 10 MG COMPRESSE [Concomitant]
     Route: 048
  9. ALAPRIL - 20 MG COMPRESSE [Concomitant]
     Indication: PRODUCT USED FOR UNKNOWN INDICATION
     Route: 048

REACTIONS (9)
  - Therapy change [Unknown]
  - Vasoconstriction [Recovered/Resolved]
  - Erythema [Recovered/Resolved]
  - Pruritus [Recovered/Resolved]
  - Nausea [Recovered/Resolved]
  - Chest pain [Recovered/Resolved]
  - Hypersensitivity [Recovered/Resolved]
  - Choking sensation [Recovered/Resolved]
  - Rash [Recovered/Resolved]

NARRATIVE: CASE EVENT DATE: 20170225
